FAERS Safety Report 9043150 (Version 1)
Quarter: 2013Q1

REPORT INFORMATION
  Report Type: Report from Study
  Country: US (occurrence: US)
  Receive Date: 20130129
  Receipt Date: 20130129
  Transmission Date: 20140127
  Serious: No
  Sender: FDA-Public Use
  Company Number: US-ABBOTT-12P-163-0898534-00

PATIENT
  Sex: Female

DRUGS (3)
  1. HUMIRA 40 MG/ 0.8 ML PRE-FILLED SYRINGE [Suspect]
     Indication: ANKYLOSING SPONDYLITIS
     Dates: start: 200401, end: 201112
  2. PRENATAL VITAMINS [Concomitant]
     Indication: PREGNANCY
  3. UNKNOWN BIRTH CONTROL [Concomitant]
     Indication: PRODUCT USED FOR UNKNOWN INDICATION

REACTIONS (3)
  - Vitamin D decreased [Unknown]
  - Arthralgia [Not Recovered/Not Resolved]
  - Lactation disorder [Recovered/Resolved]
